FAERS Safety Report 5193784-9 (Version None)
Quarter: 2006Q4

REPORT INFORMATION
  Report Type: 
  Country: None (occurrence: None)
  Receive Date: 20061221
  Receipt Date: 20061211
  Transmission Date: 20070319
  Serious: Yes (Hospitalization)
  Sender: FDA-Public Use
  Company Number: 3642

PATIENT
  Age: 20 Year
  Sex: Male

DRUGS (5)
  1. AMNESTEEM [Suspect]
     Dosage: 40 MG, QD, PO
     Route: 048
     Dates: start: 20061111, end: 20061118
  2. IV FLUIDS [Concomitant]
  3. PREDNISONE TAB [Concomitant]
  4. MORPHINE [Concomitant]
  5. BIAXIN [Concomitant]

REACTIONS (7)
  - EAR HAEMORRHAGE [None]
  - EPISTAXIS [None]
  - INFLUENZA LIKE ILLNESS [None]
  - LIP HAEMORRHAGE [None]
  - STEVENS-JOHNSON SYNDROME [None]
  - SWELLING FACE [None]
  - SWOLLEN TONGUE [None]
